FAERS Safety Report 6187284-7 (Version None)
Quarter: 2009Q2

REPORT INFORMATION
  Report Type: 
  Country: None (occurrence: None)
  Receive Date: 20090512
  Receipt Date: 20090508
  Transmission Date: 20091009
  Serious: Yes (Hospitalization)
  Sender: FDA-Public Use
  Company Number: US-ASTRAZENECA-2009UW03326

PATIENT
  Age: 498 Month
  Sex: Female

DRUGS (7)
  1. SYMBICORT [Suspect]
     Indication: CHRONIC OBSTRUCTIVE PULMONARY DISEASE
     Dosage: 160/4.5 2 2 PUFFS
     Route: 055
     Dates: start: 20080501, end: 20080801
  2. SYMBICORT [Suspect]
     Dosage: 160/4.5 2 2 PUFFS
     Route: 055
     Dates: start: 20090201
  3. PROAIR HFA [Concomitant]
     Route: 055
  4. PULMICORT RESPULES [Concomitant]
     Route: 055
  5. ALBUTEROL [Concomitant]
     Route: 055
  6. SPIRIVA [Concomitant]
  7. INSULIN [Concomitant]

REACTIONS (2)
  - CHRONIC OBSTRUCTIVE PULMONARY DISEASE [None]
  - COUGH [None]
